FAERS Safety Report 18764368 (Version 2)
Quarter: 2022Q2

REPORT INFORMATION
  Report Type: Spontaneous
  Country: US (occurrence: US)
  Receive Date: 20210120
  Receipt Date: 20220510
  Transmission Date: 20220720
  Serious: No
  Sender: FDA-Public Use
  Company Number: US-PFIZER INC-2019198576

PATIENT
  Age: 8 Year
  Sex: Female
  Weight: 24 kg

DRUGS (15)
  1. XELJANZ [Suspect]
     Active Substance: TOFACITINIB CITRATE
     Indication: Dermatomyositis
     Dosage: 7.5 MG, DAILY (5 MG, 1 TABLET IN THE MORNING AND HALF A TABLET AT NIGHT)
     Route: 048
     Dates: start: 201904, end: 2019
  2. XELJANZ [Suspect]
     Active Substance: TOFACITINIB CITRATE
     Indication: Haemophagocytic lymphohistiocytosis
     Dosage: 5 MG (X60)
     Dates: start: 20190508
  3. XELJANZ [Suspect]
     Active Substance: TOFACITINIB CITRATE
     Indication: Alopecia
     Dosage: 2.5 MG, 2X/DAY
     Route: 048
  4. XELJANZ [Suspect]
     Active Substance: TOFACITINIB CITRATE
     Indication: Myositis
     Dosage: 5 MG, 2X/DAY
  5. XELJANZ [Suspect]
     Active Substance: TOFACITINIB CITRATE
     Dosage: 2.5 MG, 2X/DAY (ONE IN THE MORNING AND ONE IN THE EVENING)
  6. XELJANZ [Suspect]
     Active Substance: TOFACITINIB CITRATE
     Dosage: 2.5 MG, 2X/DAY
  7. XELJANZ [Suspect]
     Active Substance: TOFACITINIB CITRATE
     Dosage: 5 MG
     Dates: start: 20200218, end: 2020
  8. XELJANZ [Suspect]
     Active Substance: TOFACITINIB CITRATE
     Dosage: 5 MG, 2X/DAY (5 MG PD IN THE A.M., 5 MG IN THE PM MONDAY, WEDNESDAY AND FRIDAY)
     Dates: start: 2020, end: 2020
  9. XELJANZ [Suspect]
     Active Substance: TOFACITINIB CITRATE
     Dosage: 2.5 MG, 1X/DAY (EVERY P.M TUESDAY, THURSDAY, SATURDAY, SUNDAY)
     Dates: start: 2020, end: 2020
  10. XELJANZ [Suspect]
     Active Substance: TOFACITINIB CITRATE
     Dosage: 5 MG, 2X/DAY (ONE TABLET EACH MORNING AND EVENING ON MONDAY, WEDNESDAY, AND FRIDAY)
     Dates: start: 2020
  11. XELJANZ [Suspect]
     Active Substance: TOFACITINIB CITRATE
     Dosage: 7.5 MG (ONE TABLET EACH MORNING AND HALF A TABLET ON TUESDAY, THURSDAY, SATURDAY, AND SUNDAY)
     Dates: start: 2020
  12. XELJANZ [Suspect]
     Active Substance: TOFACITINIB CITRATE
     Dosage: 5 MG
     Dates: start: 20190615
  13. XELJANZ [Suspect]
     Active Substance: TOFACITINIB CITRATE
     Dosage: 5 MG, 2X/DAY (5MG BID MONDAY, WEDNESDAY, FRIDAY)
     Dates: start: 20210112
  14. XELJANZ [Suspect]
     Active Substance: TOFACITINIB CITRATE
     Dosage: 7.5 MG, 1X/DAY (5MG, 1X/DAY (5MG IN AM AND 2.5MG IN PM ON TUESDAY, THURSDAY, SATURDAY, SUNDAY)
     Dates: start: 20210112
  15. XELJANZ [Suspect]
     Active Substance: TOFACITINIB CITRATE
     Dosage: UNK
     Dates: start: 20220101, end: 20220228

REACTIONS (7)
  - Off label use [Unknown]
  - Drug effective for unapproved indication [Unknown]
  - Off label use [Unknown]
  - Off label use [Unknown]
  - Product use issue [Unknown]
  - Product dose omission issue [Unknown]
  - Rash [Unknown]

NARRATIVE: CASE EVENT DATE: 20190401
